FAERS Safety Report 19317427 (Version 2)
Quarter: 2021Q2

REPORT INFORMATION
  Report Type: Spontaneous
  Country: US (occurrence: US)
  Receive Date: 20210527
  Receipt Date: 20210601
  Transmission Date: 20210717
  Serious: Yes (Other)
  Sender: FDA-Public Use
  Company Number: US-CELGENEUS-USA-20210506403

PATIENT
  Sex: Female
  Weight: 53.12 kg

DRUGS (5)
  1. REVLIMID [Suspect]
     Active Substance: LENALIDOMIDE
     Indication: MYELODYSPLASTIC SYNDROME
     Dosage: 10 MILLIGRAM
     Route: 048
     Dates: start: 200612
  2. REVLIMID [Suspect]
     Active Substance: LENALIDOMIDE
     Dosage: 15 ? 5 MILLIGRAM
     Route: 048
     Dates: start: 200708
  3. REVLIMID [Suspect]
     Active Substance: LENALIDOMIDE
     Indication: 5Q MINUS SYNDROME
     Dosage: 5?10 MILLIGRAM
     Route: 048
     Dates: start: 200704
  4. REVLIMID [Suspect]
     Active Substance: LENALIDOMIDE
     Dosage: 5 MILLIGRAM
     Route: 048
     Dates: start: 200901
  5. REVLIMID [Suspect]
     Active Substance: LENALIDOMIDE
     Dosage: 5 MILLIGRAM
     Route: 048
     Dates: start: 201204

REACTIONS (2)
  - Spinal compression fracture [Not Recovered/Not Resolved]
  - Blood potassium decreased [Not Recovered/Not Resolved]
